FAERS Safety Report 4334154-2 (Version None)
Quarter: 2004Q2

REPORT INFORMATION
  Report Type: 
  Country: None (occurrence: None)
  Receive Date: 20040405
  Receipt Date: 20040324
  Transmission Date: 20050107
  Serious: Yes (Hospitalization)
  Sender: FDA-Public Use
  Company Number: 2004020066

PATIENT
  Age: 50 Year
  Sex: Male
  Weight: 104.3273 kg

DRUGS (6)
  1. ROGAINE [Suspect]
     Indication: ALOPECIA
     Dosage: { 1 ML QD TO BID, TOPICAL
     Route: 061
  2. PHENELZINE SULFATE (PHENELZINE SULFATE) [Concomitant]
  3. CLONAZEPAM [Concomitant]
  4. ACETYLSALICYLIC ACID SRT [Concomitant]
  5. ASCORBIC ACID [Concomitant]
  6. TOCOPHEROL CONCENTRATE CAP [Concomitant]

REACTIONS (2)
  - HOSPITALISATION [None]
  - SKIN DESQUAMATION [None]
